FAERS Safety Report 15549955 (Version 2)
Quarter: 2018Q4

REPORT INFORMATION
  Report Type: Report from Study
  Country: US (occurrence: US)
  Receive Date: 20181025
  Receipt Date: 20181031
  Transmission Date: 20190205
  Serious: Yes (Hospitalization)
  Sender: FDA-Public Use
  Company Number: US-ROCHE-2197925

PATIENT
  Age: 83 Year
  Sex: Male

DRUGS (4)
  1. ESBRIET [Suspect]
     Active Substance: PIRFENIDONE
     Dosage: RESTARTED THERAPY (THERAPY DETAILS UNKNOWN)
     Route: 048
  2. ESBRIET [Suspect]
     Active Substance: PIRFENIDONE
     Dosage: TWO PILLS THREE TIMES A DAY
     Route: 048
     Dates: start: 20181008, end: 20181009
  3. ESBRIET [Suspect]
     Active Substance: PIRFENIDONE
     Indication: IDIOPATHIC PULMONARY FIBROSIS
     Route: 048
     Dates: start: 20180924, end: 20181007
  4. ESBRIET [Suspect]
     Active Substance: PIRFENIDONE
     Dosage: 2 PILLS THRICE A DAY
     Route: 048
     Dates: start: 201809

REACTIONS (10)
  - Abdominal pain upper [Unknown]
  - Hypertension [Recovered/Resolved]
  - Nausea [Unknown]
  - Anxiety [Recovered/Resolved]
  - Malaise [Unknown]
  - Oxygen saturation decreased [Unknown]
  - Blood pressure increased [Unknown]
  - Arthralgia [Unknown]
  - Nausea [Unknown]
  - Arthralgia [Recovered/Resolved]

NARRATIVE: CASE EVENT DATE: 201809
